FAERS Safety Report 6803303-6 (Version None)
Quarter: 2010Q2

REPORT INFORMATION
  Report Type: 
  Country: None (occurrence: None)
  Receive Date: 20100628
  Receipt Date: 20100615
  Transmission Date: 20101027
  Serious: Yes (Other)
  Sender: FDA-Public Use
  Company Number: US-PFIZER INC-2010075187

PATIENT
  Sex: Female
  Weight: 66.667 kg

DRUGS (2)
  1. CHANTIX [Suspect]
     Indication: SMOKING CESSATION THERAPY
     Dosage: UNK MG, UNK
     Route: 048
     Dates: start: 20100612
  2. VALSARTAN [Concomitant]
     Indication: HYPERTENSION
     Dosage: 80/12.5
     Route: 048

REACTIONS (1)
  - POLYDIPSIA [None]
